FAERS Safety Report 5295217-0 (Version None)
Quarter: 2007Q1

REPORT INFORMATION
  Report Type: 
  Country: None (occurrence: None)
  Receive Date: 20070201
  Receipt Date: 20061018
  Transmission Date: 20070707
  Serious: No
  Sender: FDA-Public Use
  Company Number: 2006PV023501

PATIENT
  Age: 58 Year
  Sex: Female
  Weight: 117.9352 kg

DRUGS (4)
  1. BYETTA [Suspect]
     Indication: DIABETES MELLITUS NON-INSULIN-DEPENDENT
     Dosage: 5 MCG; BID; SC
     Route: 058
     Dates: start: 20060921
  2. METFORMIN HCL [Concomitant]
  3. GLUCOVANCE [Concomitant]
  4. LANTUS [Concomitant]

REACTIONS (8)
  - BLOOD GLUCOSE [None]
  - CONFUSIONAL STATE [None]
  - DYSPEPSIA [None]
  - FATIGUE [None]
  - HEADACHE [None]
  - NAUSEA [None]
  - NERVOUSNESS [None]
  - PRURITUS [None]
